FAERS Safety Report 10234313 (Version 1)
Quarter: 2014Q2

REPORT INFORMATION
  Report Type: Report from Study
  Country: IL (occurrence: IL)
  Receive Date: 20140612
  Receipt Date: 20140612
  Transmission Date: 20141212
  Serious: Yes (Congenital Anomaly)
  Sender: FDA-Public Use
  Company Number: IL-B.I. PHARMACEUTICALS,INC./RIDGEFIELD-2014-BI-25932BI

PATIENT
  Sex: Female
  Weight: 2.69 kg

DRUGS (3)
  1. VIRAMUNE [Suspect]
     Indication: EXPOSURE DURING PREGNANCY
     Route: 064
  2. EPIVIR [Concomitant]
     Indication: EXPOSURE DURING PREGNANCY
     Route: 064
  3. ZERIT [Concomitant]
     Indication: EXPOSURE DURING PREGNANCY
     Route: 064

REACTIONS (6)
  - Inguinal hernia [Unknown]
  - Pelvi-ureteric obstruction [Unknown]
  - Hydroureter [Unknown]
  - Choanal atresia [Unknown]
  - Holoprosencephaly [Unknown]
  - Congenital hydronephrosis [Unknown]
